FAERS Safety Report 4332973-X (Version None)
Quarter: 2004Q2

REPORT INFORMATION
  Report Type: 
  Country: None (occurrence: None)
  Receive Date: 20040406
  Receipt Date: 20040303
  Transmission Date: 20050107
  Serious: Yes (Other)
  Sender: FDA-Public Use
  Company Number: BE-MERCK-0403BEL00012

PATIENT
  Age: 72 Year
  Sex: Female
  Weight: 55 kg

DRUGS (5)
  1. ACETAMINOPHEN [Concomitant]
     Route: 048
  2. FOSAMAX [Suspect]
     Indication: OSTEOPENIA
     Route: 048
     Dates: start: 20040125, end: 20040201
  3. CLORAZEPATE DIPOTASSIUM [Concomitant]
     Indication: INSOMNIA
     Route: 048
  4. DOXEPIN HYDROCHLORIDE [Concomitant]
     Indication: INSOMNIA
     Route: 048
  5. FLUTICASONE PROPIONATE AND SALMETEROL XINAFOATE [Concomitant]
     Indication: ASTHMA
     Route: 055

REACTIONS (4)
  - CHEST PAIN [None]
  - INTESTINAL HYPERMOTILITY [None]
  - MALAISE [None]
  - TINNITUS [None]
